FAERS Safety Report 5273589-0 (Version None)
Quarter: 2007Q1

REPORT INFORMATION
  Report Type: 
  Country: None (occurrence: None)
  Receive Date: 20070320
  Receipt Date: 20070305
  Transmission Date: 20070707
  Serious: Yes (Hospitalization)
  Sender: FDA-Public Use
  Company Number: 8022567

PATIENT
  Age: 63 Year
  Sex: Female

DRUGS (15)
  1. PREDNISOLONE [Suspect]
     Dosage: 5 MG 1/D
  2. ASPIRINE /00002701/ [Suspect]
     Dosage: 75 MG 1/D PO
     Route: 048
  3. MELOXICAM [Suspect]
     Indication: RHEUMATOID ARTHRITIS
     Dosage: 15 MG 1/D PO
     Route: 048
     Dates: end: 20070130
  4. RISEDRONATE SODIUM [Suspect]
     Dosage: 35 MG 1/W
  5. ALIMEMAZINE [Concomitant]
  6. ATORVASTATIN CALCIUM [Concomitant]
  7. ATROVENT [Concomitant]
  8. CO-CODAMOL [Concomitant]
  9. ISOSORBIDE MONONITRATE [Concomitant]
  10. NICORANDIL [Concomitant]
  11. OMEPRAZOLE [Concomitant]
  12. SALBUTAMOL [Concomitant]
  13. SANDOCAL /00177201/ [Concomitant]
  14. SERETIDE /01420901/ [Concomitant]
  15. TILDIEM [Concomitant]

REACTIONS (4)
  - BARRETT'S OESOPHAGUS [None]
  - DUODENAL ULCER [None]
  - DUODENITIS [None]
  - HELICOBACTER PYLORI IDENTIFICATION TEST POSITIVE [None]
